FAERS Safety Report 8664891 (Version 2)
Quarter: 2012Q4

REPORT INFORMATION
  Report Type: 
  Country: DK (occurrence: CA)
  Receive Date: 20120713
  Receipt Date: 20120917
  Transmission Date: 20130627
  Serious: Yes (Other)
  Sender: FDA-Public Use
  Company Number: CA-FRI-1000037014

PATIENT
  Age: 20 Year
  Sex: Female

DRUGS (3)
  1. CELEXA [Suspect]
     Indication: ANXIETY
     Dosage: 20 mg
     Route: 048
  2. CELEXA [Suspect]
     Indication: OBSESSIVE-COMPULSIVE DISORDER
  3. MYDRIACYL [Suspect]
     Route: 047
     Dates: start: 20060614, end: 20060614

REACTIONS (5)
  - Convulsion [Recovered/Resolved with Sequelae]
  - Loss of consciousness [Recovered/Resolved with Sequelae]
  - Grand mal convulsion [Recovered/Resolved with Sequelae]
  - Memory impairment [Recovered/Resolved with Sequelae]
  - Drug interaction [Recovered/Resolved with Sequelae]
